FAERS Safety Report 6512827-0 (Version None)
Quarter: 2009Q4

REPORT INFORMATION
  Report Type: 
  Country: None (occurrence: None)
  Receive Date: 20091217
  Receipt Date: 20091210
  Transmission Date: 20100525
  Serious: No
  Sender: FDA-Public Use
  Company Number: 20097594

PATIENT
  Sex: Female

DRUGS (1)
  1. LIORESAL [Suspect]
     Indication: MUSCLE SPASTICITY
     Dosage: MCG, DAILY, INTRATHECAL
     Route: 037

REACTIONS (7)
  - HEADACHE [None]
  - MALAISE [None]
  - NAUSEA [None]
  - SOMNOLENCE [None]
  - STAPHYLOCOCCAL INFECTION [None]
  - VOMITING [None]
  - WEIGHT DECREASED [None]
